FAERS Safety Report 8600547-8 (Version None)
Quarter: 2012Q3

REPORT INFORMATION
  Report Type: 
  Country: None (occurrence: None)
  Receive Date: 20120803
  Receipt Date: 20120731
  Transmission Date: 20120928
  Serious: Yes (Hospitalization)
  Sender: FDA-Public Use
  Company Number: 2012-KR-0021

PATIENT
  Age: 41 Year
  Sex: Male

DRUGS (1)
  1. SANCUSO [Suspect]
     Indication: PRODUCT USED FOR UNKNOWN INDICATION
     Dosage: 34.3 MG TRANSDERMAL
     Route: 062
     Dates: start: 20120628, end: 20120704

REACTIONS (1)
  - ILEUS [None]
